FAERS Safety Report 21672326 (Version 1)
Quarter: 2022Q4

REPORT INFORMATION
  Report Type: Report from Study
  Country: TW (occurrence: TW)
  Receive Date: 20221202
  Receipt Date: 20221202
  Transmission Date: 20230112
  Serious: Yes (Other)
  Sender: FDA-Public Use
  Company Number: TW-BAYER-2022A165456

PATIENT
  Age: 82 Year
  Sex: Female

DRUGS (4)
  1. EYLEA [Suspect]
     Active Substance: AFLIBERCEPT
     Indication: Neovascular age-related macular degeneration
     Dosage: 0.05 ML ,ONCE, SOLUTION FOR INJECTION, 40 MG/ML
     Route: 031
     Dates: start: 202005
  2. EYLEA [Suspect]
     Active Substance: AFLIBERCEPT
     Dosage: 0.05 ML ,ONCE, RIGHT EYE, SOLUTION FOR INJECTION, 40MG/ML
     Route: 031
     Dates: start: 20220819, end: 20220819
  3. EYLEA [Suspect]
     Active Substance: AFLIBERCEPT
     Dosage: 0.05 ML ,ONCE, SOLUTION FOR INJECTION, 40 MG/ML
     Route: 031
     Dates: end: 20221018
  4. EYLEA [Suspect]
     Active Substance: AFLIBERCEPT
     Dosage: 0.05 ML ,ONCE, SOLUTION FOR INJECTION, 40 MG/ML
     Route: 031
     Dates: start: 20221118

REACTIONS (1)
  - Eye haemorrhage [Not Recovered/Not Resolved]

NARRATIVE: CASE EVENT DATE: 20221018
